FAERS Safety Report 10239163 (Version 1)
Quarter: 2014Q2

REPORT INFORMATION
  Report Type: Spontaneous
  Country: US (occurrence: US)
  Receive Date: 20140616
  Receipt Date: 20140616
  Transmission Date: 20141212
  Serious: Yes (Hospitalization)
  Sender: FDA-Public Use
  Company Number: US-GLAXOSMITHKLINE-A1076283A

PATIENT
  Age: 42 Year
  Sex: Female

DRUGS (14)
  1. ADVAIR [Suspect]
     Indication: CHRONIC OBSTRUCTIVE PULMONARY DISEASE
     Dosage: 1PUFF TWICE PER DAY
     Route: 055
     Dates: start: 2011
  2. SPIRIVA [Concomitant]
  3. PROVENTIL [Concomitant]
  4. AMITRIPTYLIN [Concomitant]
  5. PAXIL [Concomitant]
  6. XANAX [Concomitant]
  7. HYDROCODONE [Concomitant]
  8. B1 (VITAMIN) [Concomitant]
  9. B6 [Concomitant]
  10. MAGNESIUM [Concomitant]
  11. NEXIUM [Concomitant]
  12. ONE A DAY WOMEN^S FORMULA [Concomitant]
  13. FOLIC ACID [Concomitant]
  14. ECHINACEA [Concomitant]

REACTIONS (9)
  - Dyspnoea [Recovering/Resolving]
  - Respiratory rate increased [Recovering/Resolving]
  - Dyspnoea exertional [Recovering/Resolving]
  - Acne [Recovering/Resolving]
  - Abscess oral [Recovering/Resolving]
  - Surgery [Recovering/Resolving]
  - Hypoaesthesia oral [Recovering/Resolving]
  - Sleep apnoea syndrome [Not Recovered/Not Resolved]
  - Drug dose omission [Recovering/Resolving]
